FAERS Safety Report 8122526-X (Version None)
Quarter: 2012Q1

REPORT INFORMATION
  Report Type: 
  Country: None (occurrence: None)
  Receive Date: 20120207
  Receipt Date: 20120207
  Transmission Date: 20120608
  Serious: Yes (Hospitalization)
  Sender: FDA-Public Use
  Company Number: None

PATIENT
  Age: 58 Year
  Sex: Female
  Weight: 46.8 kg

DRUGS (15)
  1. REGLAN [Concomitant]
  2. SYMBICORT [Concomitant]
  3. ACETAMINOPHEN [Concomitant]
  4. PEPCID [Concomitant]
  5. OXYCONTIN [Concomitant]
  6. KML001 [Suspect]
     Indication: LUNG NEOPLASM MALIGNANT
     Dosage: 20 MG
     Dates: start: 20120109
  7. PREDNISONE [Concomitant]
  8. COLACE [Concomitant]
  9. RITALIN [Concomitant]
  10. OXYCODONE HCL [Concomitant]
  11. CISPLATIN [Suspect]
     Indication: LUNG CANCER METASTATIC
     Dosage: 112 MG
     Dates: start: 20120109
  12. DIAZEPAM [Concomitant]
  13. FLONASE [Concomitant]
  14. DUONEBS [Concomitant]
  15. MEGACE [Concomitant]

REACTIONS (7)
  - PNEUMONIA [None]
  - UNRESPONSIVE TO STIMULI [None]
  - TACHYCARDIA [None]
  - DYSPNOEA [None]
  - MUSCULOSKELETAL CHEST PAIN [None]
  - BLOOD ALCOHOL INCREASED [None]
  - PERICARDIAL EFFUSION [None]
